FAERS Safety Report 8171042-8 (Version None)
Quarter: 2012Q1

REPORT INFORMATION
  Report Type: 
  Country: None (occurrence: None)
  Receive Date: 20120228
  Receipt Date: 20120220
  Transmission Date: 20120608
  Serious: Yes (Hospitalization)
  Sender: FDA-Public Use
  Company Number: PHHO2011FR17108

PATIENT
  Sex: Male
  Weight: 72 kg

DRUGS (5)
  1. MYCOPHENOLATE MOFETIL (CELLCEPT) [Suspect]
     Indication: RENAL TRANSPLANT
     Dosage: 500 MG, QD
     Route: 048
     Dates: start: 20110919, end: 20111119
  2. RAD 666 / RAD 001A [Suspect]
     Indication: RENAL TRANSPLANT
     Dosage: 1.5 MG, QD
     Route: 048
     Dates: start: 20110924, end: 20111003
  3. NEORAL [Suspect]
     Indication: RENAL TRANSPLANT
     Dosage: 750 + 150MG
     Route: 048
     Dates: start: 20111007
  4. MYCOPHENOLATE MOFETIL (CELLCEPT) [Suspect]
     Dosage: 500 MG, QD
     Route: 048
     Dates: start: 20111126
  5. PREDNISONE TAB [Suspect]
     Indication: RENAL TRANSPLANT
     Dosage: 10 MG, QD
     Route: 048
     Dates: start: 20110925

REACTIONS (4)
  - PANCYTOPENIA [None]
  - IMPAIRED HEALING [None]
  - CYTOMEGALOVIRUS INFECTION [None]
  - HYPERCREATININAEMIA [None]
